FAERS Safety Report 4484682-4 (Version None)
Quarter: 2004Q4

REPORT INFORMATION
  Report Type: 
  Country: None (occurrence: None)
  Receive Date: 20041022
  Receipt Date: 20041006
  Transmission Date: 20050328
  Serious: Yes (Death)
  Sender: FDA-Public Use
  Company Number: 2004AL000549

PATIENT
  Age: 22 Year

DRUGS (3)
  1. ALPRAZOLAM TABLETS USP, 0.25 MG, 0.5 MG, 1 MG + 2 MG (PUREPAC) [Suspect]
     Dosage: PO
     Route: 048
  2. METHYLENEDIOXYMETHAMPHETAMINE [Suspect]
     Dosage: PO
     Route: 048
  3. CARISOPRODOL [Suspect]
     Dosage: PO
     Route: 048

REACTIONS (2)
  - CARDIO-RESPIRATORY ARREST [None]
  - MULTIPLE DRUG OVERDOSE [None]
